FAERS Safety Report 11164405 (Version 1)
Quarter: 2015Q2

REPORT INFORMATION
  Report Type: Spontaneous
  Country: US (occurrence: None)
  Receive Date: 20150603
  Receipt Date: 20150603
  Transmission Date: 20150821
  Serious: No
  Sender: FDA-Public Use
  Company Number: None

PATIENT
  Age: 81 Year
  Sex: Male
  Weight: 98.7 kg

DRUGS (1)
  1. DABIGATRAN [Suspect]
     Active Substance: DABIGATRAN
     Indication: ATRIAL FIBRILLATION
     Route: 048
     Dates: start: 20060530, end: 20070810

REACTIONS (4)
  - Throat tightness [None]
  - Choking sensation [None]
  - Oropharyngeal spasm [None]
  - Dysphagia [None]

NARRATIVE: CASE EVENT DATE: 20120426
